FAERS Safety Report 6431365-7 (Version None)
Quarter: 2009Q4

REPORT INFORMATION
  Report Type: 
  Country: None (occurrence: None)
  Receive Date: 20091106
  Receipt Date: 20091024
  Transmission Date: 20100525
  Serious: Yes (Other)
  Sender: FDA-Public Use
  Company Number: PHHY2009BR46370

PATIENT
  Sex: Male

DRUGS (2)
  1. FORASEQ [Suspect]
     Indication: LUNG DISORDER
     Dosage: BID
     Dates: start: 20091023
  2. ATENOLOL AND CHLORTHALIDONE [Concomitant]
     Indication: HYPERTENSION
     Route: 048

REACTIONS (2)
  - COUGH [None]
  - PYREXIA [None]
